FAERS Safety Report 24981283 (Version 3)
Quarter: 2025Q2

REPORT INFORMATION
  Report Type: Spontaneous
  Country: JP (occurrence: JP)
  Receive Date: 20250218
  Receipt Date: 20250612
  Transmission Date: 20250717
  Serious: Yes (Other)
  Sender: PFIZER
  Company Number: JP-ONO-2025JP002507

PATIENT
  Age: 79 Year
  Sex: Male

DRUGS (5)
  1. MEKTOVI [Suspect]
     Active Substance: BINIMETINIB
     Indication: Malignant melanoma
     Dosage: 90 MG, EVERYDAY
     Route: 048
     Dates: start: 20241212
  2. MEKTOVI [Suspect]
     Active Substance: BINIMETINIB
     Dosage: 90 MG, EVERYDAY
     Route: 048
     Dates: start: 20250324
  3. BRAFTOVI [Suspect]
     Active Substance: ENCORAFENIB
     Indication: Malignant melanoma
     Dosage: 150 MG, EVERYDAY
     Route: 048
     Dates: start: 20241212
  4. BRAFTOVI [Suspect]
     Active Substance: ENCORAFENIB
     Dosage: 150 MG, EVERYDAY
     Route: 048
     Dates: start: 20250324
  5. METFORMIN HYDROCHLORIDE [Concomitant]
     Active Substance: METFORMIN HYDROCHLORIDE

REACTIONS (2)
  - Renal impairment [Recovered/Resolved]
  - Eosinophil count increased [Recovering/Resolving]

NARRATIVE: CASE EVENT DATE: 20250101
